FAERS Safety Report 4501257-9 (Version None)
Quarter: 2004Q4

REPORT INFORMATION
  Report Type: 
  Country: None (occurrence: None)
  Receive Date: 20040927
  Receipt Date: 20040720
  Transmission Date: 20050328
  Serious: No
  Sender: FDA-Public Use
  Company Number: USA030332222

PATIENT
  Age: 51 Year
  Sex: Female
  Weight: 69 kg

DRUGS (2)
  1. STRATTERA [Suspect]
     Indication: ATTENTION DEFICIT/HYPERACTIVITY DISORDER
     Dosage: 40 MG/1 IN THE MORNING
     Dates: start: 20030322, end: 20030325
  2. PROZAC [Suspect]
     Indication: DEPRESSION
     Dates: start: 19940101

REACTIONS (6)
  - ANOREXIA [None]
  - DRUG INEFFECTIVE [None]
  - DYSURIA [None]
  - INSOMNIA [None]
  - URINE OUTPUT DECREASED [None]
  - VISUAL DISTURBANCE [None]
